FAERS Safety Report 23301141 (Version 1)
Quarter: 2023Q4

REPORT INFORMATION
  Report Type: Spontaneous
  Country: ZA (occurrence: None)
  Receive Date: 20231215
  Receipt Date: 20231215
  Transmission Date: 20240109
  Serious: Yes (Hospitalization, Disabling)
  Sender: FDA-Public Use
  Company Number: None

PATIENT
  Age: 67 Year
  Sex: Male
  Weight: 74 kg

DRUGS (10)
  1. CIPRO [Suspect]
     Active Substance: CIPROFLOXACIN HYDROCHLORIDE
     Indication: Prostatitis
     Dosage: FREQUENCY : TWICE A DAY;?
     Route: 048
     Dates: start: 19950504, end: 20181105
  2. LEVOFLOXACIN [Suspect]
     Active Substance: LEVOFLOXACIN
  3. Erbewin [Concomitant]
  4. ARCOXIA [Concomitant]
     Active Substance: ETORICOXIB
  5. Synaleave [Concomitant]
  6. BONIVA [Concomitant]
     Active Substance: IBANDRONATE SODIUM
  7. Sylodex [Concomitant]
  8. VITAMIN D3 [Concomitant]
     Active Substance: CHOLECALCIFEROL
  9. VITAMIN C [Concomitant]
     Active Substance: ASCORBIC ACID
  10. OMEGA 3 [Concomitant]
     Active Substance: CAPSAICIN

REACTIONS (5)
  - Tendon rupture [None]
  - Neuropathy peripheral [None]
  - Tinnitus [None]
  - Pain in extremity [None]
  - Gastrointestinal disorder [None]

NARRATIVE: CASE EVENT DATE: 20180812
